FAERS Safety Report 18721837 (Version 7)
Quarter: 2023Q1

REPORT INFORMATION
  Report Type: Report from Study
  Country: US (occurrence: US)
  Receive Date: 20210111
  Receipt Date: 20230207
  Transmission Date: 20230418
  Serious: Yes (Other)
  Sender: FDA-Public Use
  Company Number: NVSC2021US003688

PATIENT
  Sex: Female

DRUGS (2)
  1. AFINITOR [Suspect]
     Active Substance: EVEROLIMUS
     Indication: Breast cancer metastatic
     Dosage: UNK
     Route: 065
  2. KISQALI [Suspect]
     Active Substance: RIBOCICLIB
     Indication: Breast cancer metastatic
     Dosage: UNK
     Route: 065

REACTIONS (8)
  - Breast cancer metastatic [Unknown]
  - Malignant neoplasm progression [Unknown]
  - Bone cancer [Unknown]
  - Second primary malignancy [Unknown]
  - Skin lesion [Unknown]
  - Ulcer [Unknown]
  - COVID-19 [Unknown]
  - Arthralgia [Unknown]
